FAERS Safety Report 8290441 (Version 7)
Quarter: 2015Q1

REPORT INFORMATION
  Report Type: Report from Study
  Country: DE (occurrence: DE)
  Receive Date: 20111214
  Receipt Date: 20150304
  Transmission Date: 20150721
  Serious: Yes (Life-Threatening, Hospitalization)
  Sender: FDA-Public Use
  Company Number: DE-BRISTOL-MYERS SQUIBB COMPANY-16284424

PATIENT
  Age: 46 Year
  Sex: Male
  Weight: 47 kg

DRUGS (7)
  1. KEVATRIL [Concomitant]
     Active Substance: GRANISETRON HYDROCHLORIDE
     Indication: ANTIEMETIC SUPPORTIVE CARE
     Dosage: 1DF: 3 UNITS NOS.
     Route: 065
     Dates: start: 20111122, end: 20120125
  2. CISPLATIN. [Suspect]
     Active Substance: CISPLATIN
     Indication: HEAD AND NECK CANCER
     Dosage: 45.36 MG, UNK
     Route: 065
     Dates: start: 20110712
  3. FENISTIL [Concomitant]
     Active Substance: DIMETHINDENE
     Indication: ANTIALLERGIC THERAPY
     Dosage: 1DF: 1 UNITS NOS.
     Route: 065
     Dates: start: 20111122, end: 20120125
  4. CETUXIMAB [Suspect]
     Active Substance: CETUXIMAB
     Indication: HEAD AND NECK CANCER
     Dosage: 604.8 MG, UNK
     Route: 065
     Dates: start: 20110712
  5. DEXAMETHASONE. [Concomitant]
     Active Substance: DEXAMETHASONE
     Indication: ANTIINFLAMMATORY THERAPY
     Dosage: 1DF: 8 UNITS NOS.
     Route: 065
     Dates: start: 20111122, end: 20120125
  6. DOCETAXEL. [Suspect]
     Active Substance: DOCETAXEL
     Indication: HEAD AND NECK CANCER
     Dosage: 60.48 MG, UNK
     Route: 065
     Dates: start: 20110712
  7. FLUOROURACIL. [Suspect]
     Active Substance: FLUOROURACIL
     Indication: HEAD AND NECK CANCER
     Dosage: 1512 MG, UNK
     Route: 065
     Dates: start: 20110712

REACTIONS (2)
  - Leukopenia [Recovered/Resolved]
  - Neutropenia [Recovered/Resolved]

NARRATIVE: CASE EVENT DATE: 20111129
